FAERS Safety Report 20301769 (Version 1)
Quarter: 2022Q1

REPORT INFORMATION
  Report Type: Spontaneous
  Country: RS (occurrence: RS)
  Receive Date: 20220105
  Receipt Date: 20220105
  Transmission Date: 20220423
  Serious: Yes (Hospitalization)
  Sender: FDA-Public Use
  Company Number: RS-BIOMARINAP-RS-2022-140535

PATIENT
  Age: 9 Year
  Sex: Male
  Weight: 26.2 kg

DRUGS (5)
  1. BRINEURA [Suspect]
     Active Substance: CERLIPONASE ALFA
     Indication: Neuronal ceroid lipofuscinosis
     Dosage: 300 MILLIGRAM, QOW
     Route: 020
     Dates: start: 201709
  2. VANCOMYCIN [Suspect]
     Active Substance: VANCOMYCIN
     Indication: Device related infection
     Dosage: UNK
     Route: 042
     Dates: start: 202110, end: 202110
  3. IMIPENEM [Concomitant]
     Active Substance: IMIPENEM
     Indication: Device related infection
     Dosage: UNK
     Route: 042
  4. CEFTRIAXONE [Concomitant]
     Active Substance: CEFTRIAXONE
     Indication: Device related infection
     Route: 042
  5. TEICOPLANIN [Concomitant]
     Active Substance: TEICOPLANIN
     Indication: Device related infection

REACTIONS (3)
  - Tubulointerstitial nephritis [Recovered/Resolved]
  - Haematuria [Recovered/Resolved]
  - Hypertension [Recovered/Resolved]

NARRATIVE: CASE EVENT DATE: 20211001
